FAERS Safety Report 8804435 (Version 1)
Quarter: 2012Q4

REPORT INFORMATION
  Report Type: 
  Country: US (occurrence: US)
  Receive Date: 20120924
  Receipt Date: 20120924
  Transmission Date: 20130627
  Serious: Yes (Other)
  Sender: FDA-Public Use
  Company Number: US-TEVA-360103USA

PATIENT

DRUGS (3)
  1. BLEOMYCIN [Suspect]
  2. CISPLATIN [Suspect]
  3. ETOPOSIDE [Suspect]

REACTIONS (1)
  - Agranulocytosis [Unknown]
